FAERS Safety Report 4715378-9 (Version None)
Quarter: 2005Q3

REPORT INFORMATION
  Report Type: 
  Country: None (occurrence: None)
  Receive Date: 20050715
  Receipt Date: 20050404
  Transmission Date: 20060218
  Serious: Yes (Hospitalization)
  Sender: FDA-Public Use
  Company Number: US-MERCK-0504USA00693

PATIENT
  Age: 63 Year
  Sex: Male
  Weight: 86 kg

DRUGS (12)
  1. VIOXX [Suspect]
     Indication: RHEUMATOID ARTHRITIS
     Route: 048
     Dates: start: 20021201, end: 20040930
  2. ASPIRIN [Concomitant]
     Route: 065
  3. ACTOS [Concomitant]
     Route: 065
  4. MICRONASE [Concomitant]
     Route: 065
  5. POTASSIUM (UNSPECIFIED) [Concomitant]
     Route: 065
  6. PRAVACHOL [Concomitant]
     Route: 065
     Dates: start: 20020101, end: 20030320
  7. GLYBURIDE [Concomitant]
     Route: 065
  8. AXID [Concomitant]
     Route: 065
  9. ATENOLOL [Concomitant]
     Route: 065
     Dates: start: 20020101, end: 20030301
  10. CLARITIN [Concomitant]
     Route: 065
  11. FUROSEMIDE [Concomitant]
     Route: 065
     Dates: start: 20020101, end: 20030101
  12. POTASSIUM CHLORIDE [Concomitant]
     Route: 065

REACTIONS (6)
  - ABDOMINAL PAIN UPPER [None]
  - ANGINA UNSTABLE [None]
  - CORONARY ARTERY DISEASE [None]
  - DEPRESSION [None]
  - MYOCARDIAL INFARCTION [None]
  - NASAL CONGESTION [None]
